FAERS Safety Report 19728527 (Version 4)
Quarter: 2022Q1

REPORT INFORMATION
  Report Type: Report from Study
  Country: BG (occurrence: BG)
  Receive Date: 20210820
  Receipt Date: 20220107
  Transmission Date: 20220423
  Serious: Yes (Hospitalization)
  Sender: FDA-Public Use
  Company Number: BG-ROCHE-2490529

PATIENT
  Age: 78 Year
  Sex: Female
  Weight: 59 kg

DRUGS (21)
  1. TRASTUZUMAB [Suspect]
     Active Substance: TRASTUZUMAB
     Indication: Breast cancer metastatic
     Dosage: 600 MILLIGRAM, Q3W
     Route: 058
     Dates: start: 20190821, end: 20200528
  2. TRASTUZUMAB [Suspect]
     Active Substance: TRASTUZUMAB
     Dosage: 600 MILLIGRAM, Q3W
     Route: 058
     Dates: start: 20190821
  3. DOCETAXEL [Suspect]
     Active Substance: DOCETAXEL
     Indication: Breast cancer metastatic
     Dosage: 75 MILLIGRAM/SQ. METER, QD  (MOST RECENT DOSE PRIOR TO THE EVENT: 21/AUG/2019 AND 11/SEP/2019)
     Route: 042
     Dates: start: 20190821, end: 20190821
  4. LAPATINIB [Suspect]
     Active Substance: LAPATINIB
     Indication: Breast cancer metastatic
     Dosage: 1250 MILLIGRAM, QD, MOST RECENT DOSE ON 20/JAN/2021
     Route: 048
  5. DENOSUMAB [Suspect]
     Active Substance: DENOSUMAB
     Indication: Breast cancer metastatic
     Dosage: 120 MILLIGRAM, MONTHLY, START DATE 26-JUN-2020
     Route: 058
  6. CAPECITABINE [Suspect]
     Active Substance: CAPECITABINE
     Indication: Breast cancer metastatic
     Dosage: 1500 MILLIGRAM, ON 13/JAN/2021, SHE RECEIVED MOST RECENT DOSE OF CAPECITABINE
     Route: 048
  7. EXEMESTANE [Suspect]
     Active Substance: EXEMESTANE
     Indication: Breast cancer metastatic
     Dosage: 25 MILLIGRAM, QD, START DATE 11-JAN-2020
     Route: 048
     Dates: end: 20200625
  8. PERTUZUMAB [Suspect]
     Active Substance: PERTUZUMAB
     Indication: Breast cancer metastatic
     Dosage: 840 MILLIGRAM, QD (MOST RECENT DOSE PRIOR TO THE EVENT: 21/AUG/2019 AND 11/SEP/2019)
     Route: 042
     Dates: start: 20190821, end: 20190821
  9. ZOLEDRONIC ACID [Suspect]
     Active Substance: ZOLEDRONIC ACID
     Indication: Breast cancer metastatic
     Dosage: 4 MILLIGRAM
     Route: 042
     Dates: start: 20190822
  10. ADO-TRASTUZUMAB EMTANSINE [Suspect]
     Active Substance: ADO-TRASTUZUMAB EMTANSINE
     Indication: Breast cancer metastatic
     Dosage: 3.6 MILLIGRAM/KILOGRAM, ON 13/NOV/2020, SHE RECEIVED MOST RECENT DOSE OF TRASTUZUMAB EMTANSINE
     Route: 042
  11. DEXAMETHASONE [Concomitant]
     Active Substance: DEXAMETHASONE
     Indication: Neutropenia
     Dosage: UNK
     Dates: start: 20190920, end: 20190921
  12. FILGRASTIM [Concomitant]
     Active Substance: FILGRASTIM
     Indication: Neutropenia
     Dosage: UNK
     Dates: start: 20190828, end: 20190829
  13. FILGRASTIM [Concomitant]
     Active Substance: FILGRASTIM
     Dosage: ONGOING = NOT CHECKED
     Dates: start: 20190920, end: 20190920
  14. BISOPROLOL FUMARATE [Concomitant]
     Active Substance: BISOPROLOL FUMARATE
     Indication: Breast cancer metastatic
     Dosage: UNK
     Dates: start: 20130615
  15. XGEVA [Concomitant]
     Active Substance: DENOSUMAB
     Dosage: 120 MILLIGRAM, Q28D
     Route: 058
     Dates: start: 20200626
  16. ZOLEDRONIC ACID [Concomitant]
     Active Substance: ZOLEDRONIC ACID
     Dosage: Q4WEEK
     Route: 042
     Dates: start: 20190822, end: 20200508
  17. CEFTRIAXONE [Concomitant]
     Active Substance: CEFTRIAXONE
     Indication: Diarrhoea
     Dosage: UNK
     Dates: start: 20190828, end: 20190830
  18. FOLIC ACID [Concomitant]
     Active Substance: FOLIC ACID
     Indication: Anaemia
     Dosage: UNK
  19. FERROUS SULFATE [Concomitant]
     Active Substance: FERROUS SULFATE
     Indication: Anaemia
     Dosage: UNK
  20. INDEXTOL [Concomitant]
     Dosage: UNK
  21. ACETAMINOPHEN [Concomitant]
     Active Substance: ACETAMINOPHEN
     Indication: Pyrexia
     Dosage: UNK

REACTIONS (5)
  - Neutropenia [Recovered/Resolved]
  - White blood cell count decreased [Recovered/Resolved]
  - Diarrhoea [Recovered/Resolved]
  - Stomatitis [Recovered/Resolved]
  - Blood creatinine increased [Recovered/Resolved]

NARRATIVE: CASE EVENT DATE: 20190823
